FAERS Safety Report 20216338 (Version 1)
Quarter: 2021Q4

REPORT INFORMATION
  Report Type: Spontaneous
  Country: US (occurrence: None)
  Receive Date: 20211221
  Receipt Date: 20211221
  Transmission Date: 20220303
  Serious: No
  Sender: FDA-Public Use
  Company Number: None

PATIENT

DRUGS (1)
  1. SAPHNELO [Suspect]
     Active Substance: ANIFROLUMAB-FNIA
     Indication: Systemic lupus erythematosus
     Dates: start: 20211221

REACTIONS (3)
  - Infusion site pruritus [None]
  - Infusion site urticaria [None]
  - Chest discomfort [None]

NARRATIVE: CASE EVENT DATE: 20211221
